FAERS Safety Report 8234734-8 (Version None)
Quarter: 2012Q1

REPORT INFORMATION
  Report Type: 
  Country: None (occurrence: None)
  Receive Date: 20120326
  Receipt Date: 20120315
  Transmission Date: 20120608
  Serious: No
  Sender: FDA-Public Use
  Company Number: US-B.I. PHARMACEUTICALS,INC./RIDGEFIELD-2012-BP-05023BP

PATIENT
  Age: 83 Year
  Sex: Female

DRUGS (7)
  1. ASPIRIN [Concomitant]
     Dosage: 81 MG
  2. PRADAXA [Suspect]
     Indication: ATRIAL FIBRILLATION
     Dosage: 300 MG
     Route: 048
     Dates: start: 20100407
  3. WELCHOL [Concomitant]
     Indication: BLOOD CHOLESTEROL
  4. BENAZEPRIL HYDROCHLORIDE [Concomitant]
     Dosage: 20 MG
  5. CRESTOR [Concomitant]
     Dosage: 10 MG
  6. CARDIZEM CR [Concomitant]
     Dosage: 180 MG
  7. METOPROLOL TARTRATE [Concomitant]
     Dosage: 100 MG

REACTIONS (1)
  - DYSPNOEA [None]
